FAERS Safety Report 5571635-8 (Version None)
Quarter: 2007Q4

REPORT INFORMATION
  Report Type: 
  Country: None (occurrence: None)
  Receive Date: 20071221
  Receipt Date: 20071029
  Transmission Date: 20080405
  Serious: No
  Sender: FDA-Public Use
  Company Number: US-BRISTOL-MYERS SQUIBB COMPANY-13959598

PATIENT
  Age: 37 Year
  Sex: Female
  Weight: 57 kg

DRUGS (2)
  1. SPRYCEL [Suspect]
     Indication: CHRONIC MYELOID LEUKAEMIA
     Dosage: STOPPED ON 14TH + 15TH OCT AND RESUMED ON 16-OCT-07 WITH 70MG/DAY.
     Dates: start: 20071012
  2. ASPIRIN [Concomitant]

REACTIONS (1)
  - MIGRAINE [None]
